FAERS Safety Report 21215021 (Version 1)
Quarter: 2022Q3

REPORT INFORMATION
  Report Type: Spontaneous
  Country: CN (occurrence: CN)
  Receive Date: 20220816
  Receipt Date: 20220816
  Transmission Date: 20221027
  Serious: Yes (Other)
  Sender: FDA-Public Use
  Company Number: None

PATIENT
  Age: 55 Year
  Sex: Female
  Weight: 63 kg

DRUGS (9)
  1. CYCLOPHOSPHAMIDE [Suspect]
     Active Substance: CYCLOPHOSPHAMIDE
     Indication: Invasive ductal breast carcinoma
     Dosage: 0.98 G, QD, DILUTED WITH 0.9% SODIUM CHLORIDE INJECTION (100 ML)
     Route: 041
     Dates: start: 20220714, end: 20220714
  2. CYCLOPHOSPHAMIDE [Suspect]
     Active Substance: CYCLOPHOSPHAMIDE
     Indication: HER2 protein overexpression
  3. SODIUM CHLORIDE [Suspect]
     Active Substance: SODIUM CHLORIDE
     Indication: Medication dilution
     Dosage: 100 ML, QD, DILUTED WITH CYCLOPHOSPHAMIDE FOR INJECTION (0.98 G)
     Route: 041
     Dates: start: 20220714, end: 20220714
  4. SODIUM CHLORIDE [Suspect]
     Active Substance: SODIUM CHLORIDE
     Dosage: 250 ML, QD, DILUTED WITH DOCETAXEL INJECTION (120 MG)
     Route: 041
     Dates: start: 20220714, end: 20220714
  5. SODIUM CHLORIDE [Suspect]
     Active Substance: SODIUM CHLORIDE
     Dosage: 250 ML, QD, DILUTED WITH HERCEPTIN (TRASTUZUMAB) INJECTION (304 MG)
     Route: 041
     Dates: start: 20220714, end: 20220714
  6. DOCETAXEL [Suspect]
     Active Substance: DOCETAXEL
     Indication: Invasive ductal breast carcinoma
     Dosage: 120 MG, QD, DILUTED WITH 0.9% SODIUM CHLORIDE INJECTION (250 ML)
     Route: 041
     Dates: start: 20220714, end: 20220714
  7. DOCETAXEL [Suspect]
     Active Substance: DOCETAXEL
     Indication: HER2 protein overexpression
  8. HERCEPTIN [Suspect]
     Active Substance: TRASTUZUMAB
     Indication: Invasive ductal breast carcinoma
     Dosage: 304 MG, QD, DILUTED WITH 0.9% SODIUM CHLORIDE INJECTION (250 ML)
     Route: 041
     Dates: start: 20220714, end: 20220714
  9. HERCEPTIN [Suspect]
     Active Substance: TRASTUZUMAB
     Indication: HER2 protein overexpression

REACTIONS (2)
  - White blood cell count decreased [Recovering/Resolving]
  - Neutrophil count decreased [Recovering/Resolving]

NARRATIVE: CASE EVENT DATE: 20220804
